FAERS Safety Report 4313813-1 (Version None)
Quarter: 2004Q1

REPORT INFORMATION
  Report Type: 
  Country: None (occurrence: None)
  Receive Date: 20040305
  Receipt Date: 20040220
  Transmission Date: 20041129
  Serious: Yes (Hospitalization, Other)
  Sender: FDA-Public Use
  Company Number: CA-SHR-04-021654

PATIENT
  Age: 61 Year
  Sex: Male

DRUGS (18)
  1. BETASERON [Suspect]
     Indication: MULTIPLE SCLEROSIS
     Dosage: 8 MIU, EVERY 2D, SUBCUTANEOUS
     Route: 058
     Dates: start: 19970619
  2. DEMEROL [Suspect]
     Dates: start: 20040126
  3. PROZAC [Concomitant]
  4. ACEBUTOLOL [Concomitant]
  5. LIPITOR [Concomitant]
  6. AMITRIPTYLINE HCL [Concomitant]
  7. HYDROCHLOROTHIAZIDE [Concomitant]
  8. FLEXERIL [Concomitant]
  9. GABAPENTIN (GABAPENTIN) [Concomitant]
  10. FLOMAX ^BOEHRINGER INGELHEIM^ (TAMSULOSIN HYDROCHLORIDE) [Concomitant]
  11. GUESENJI PATCH [Concomitant]
  12. ACETYLSALICYLIC ACID SRT [Concomitant]
  13. COLACE (DOCUSATE SODIUM) [Concomitant]
  14. GLYCERIN (GLYCEROL) [Concomitant]
  15. VITAMIN D NOS (VITAMIN D NOS) [Concomitant]
  16. DIOVANE (VALSARTAN) [Concomitant]
  17. TYLENOL (CAPLET) [Concomitant]
  18. IBUPROFEN [Concomitant]

REACTIONS (4)
  - DRUG INEFFECTIVE [None]
  - MUSCLE SPASMS [None]
  - PNEUMONIA [None]
  - RESPIRATORY DISTRESS [None]
